FAERS Safety Report 6978749-6 (Version None)
Quarter: 2010Q3

REPORT INFORMATION
  Report Type: 
  Country: None (occurrence: None)
  Receive Date: 20100913
  Receipt Date: 20100903
  Transmission Date: 20110219
  Serious: Yes (Other)
  Sender: FDA-Public Use
  Company Number: US-ROCHE-725634

PATIENT
  Sex: Female
  Weight: 86.6 kg

DRUGS (15)
  1. BEVACIZUMAB [Suspect]
     Indication: MESOTHELIOMA
     Dosage: MOST RESENT DOSE ON 31 AUGUST 2010.
     Route: 042
     Dates: start: 20100326
  2. CISPLATIN [Suspect]
     Indication: MESOTHELIOMA
     Dosage: FREQUENCY: Q 3 WKS X 6
     Route: 042
     Dates: start: 20100316, end: 20100629
  3. PEMETREXED [Suspect]
     Indication: MESOTHELIOMA
     Route: 065
     Dates: start: 20100316, end: 20100629
  4. HYDROCHLOROTHIAZIDE [Concomitant]
  5. LYRICA [Concomitant]
  6. SKELAXIN [Concomitant]
  7. PRISTIQ [Concomitant]
  8. FOLIC ACID [Concomitant]
  9. MULTI-VITAMIN [Concomitant]
  10. FENTANYL-75 [Concomitant]
  11. DOCUSATE SODIUM [Concomitant]
  12. TESSALON [Concomitant]
  13. PEARL DROPS [Concomitant]
  14. ATIVAN [Concomitant]
  15. HYDROCODONE BITARTRATE + ACETAMINOPHEN [Concomitant]
     Dosage: REPORTED AS HYDROCODONE/ACETAMINOPHEN

REACTIONS (1)
  - CONVULSION [None]
